FAERS Safety Report 21911156 (Version 1)
Quarter: 2023Q1

REPORT INFORMATION
  Report Type: Spontaneous
  Country: US (occurrence: None)
  Receive Date: 20230125
  Receipt Date: 20230125
  Transmission Date: 20230417
  Serious: Yes (Life-Threatening, Other)
  Sender: FDA-Public Use
  Company Number: None

PATIENT
  Age: 55 Year
  Sex: Female
  Weight: 99 kg

DRUGS (1)
  1. BELBUCA [Suspect]
     Active Substance: BUPRENORPHINE HYDROCHLORIDE
     Indication: Pain
     Dosage: OTHER QUANTITY : 1 BUCCAL FILM;?FREQUENCY : DAILY;?OTHER ROUTE : ATTACHED TO INSIDE OF THE CHEEK;?
     Route: 050
     Dates: start: 20220923, end: 20220923

REACTIONS (7)
  - Urticaria [None]
  - Loss of consciousness [None]
  - Amnesia [None]
  - Adverse drug reaction [None]
  - Brief resolved unexplained event [None]
  - Somnolence [None]
  - Unresponsive to stimuli [None]

NARRATIVE: CASE EVENT DATE: 20220923
